FAERS Safety Report 8469783-8 (Version None)
Quarter: 2012Q2

REPORT INFORMATION
  Report Type: 
  Country: None (occurrence: None)
  Receive Date: 20120626
  Receipt Date: 20120618
  Transmission Date: 20120825
  Serious: Yes (Hospitalization, Other)
  Sender: FDA-Public Use
  Company Number: US-MERCK-1204USA02815

PATIENT
  Age: 54 Year
  Sex: Female
  Weight: 43 kg

DRUGS (6)
  1. VITAMINS (UNSPECIFIED) [Concomitant]
     Route: 065
     Dates: start: 20000101
  2. CALCIUM (UNSPECIFIED) AND VITAMIN D (UNSPECIFIED) [Concomitant]
     Route: 065
  3. ALENDRONATE SODIUM [Suspect]
     Indication: OSTEOPOROSIS
     Route: 048
     Dates: start: 20090605
  4. FOSAMAX [Suspect]
     Indication: OSTEOPOROSIS
     Route: 048
     Dates: start: 20090605
  5. CALCIUM (UNSPECIFIED) [Concomitant]
     Indication: OSTEOPOROSIS
     Route: 065
  6. VITAMIN D (UNSPECIFIED) [Concomitant]
     Indication: OSTEOPOROSIS
     Route: 065

REACTIONS (13)
  - ANAEMIA POSTOPERATIVE [None]
  - FALL [None]
  - LOW TURNOVER OSTEOPATHY [None]
  - LUNG DISORDER [None]
  - INAPPROPRIATE SCHEDULE OF DRUG ADMINISTRATION [None]
  - URINARY TRACT INFECTION [None]
  - PROCEDURAL HAEMORRHAGE [None]
  - DEPRESSION [None]
  - DENTAL CARIES [None]
  - CONSTIPATION [None]
  - ARTHROPATHY [None]
  - HIP FRACTURE [None]
  - STRESS [None]
